FAERS Safety Report 16246882 (Version 1)
Quarter: 2019Q2

REPORT INFORMATION
  Report Type: Report from Study
  Country: IT (occurrence: IT)
  Receive Date: 20190427
  Receipt Date: 20190427
  Transmission Date: 20190711
  Serious: Yes (Other)
  Sender: FDA-Public Use
  Company Number: IT-ACCORD-124455

PATIENT
  Age: 60 Year
  Sex: Female

DRUGS (4)
  1. IRINOTECAN FRESENIUS [Suspect]
     Active Substance: IRINOTECAN
     Indication: COLORECTAL CANCER
     Route: 042
     Dates: start: 20180313, end: 20180313
  2. PANITUMUMAB [Concomitant]
     Active Substance: PANITUMUMAB
     Indication: COLORECTAL CANCER
     Route: 042
     Dates: start: 20180313, end: 20180313
  3. OXALIPLATIN ACCORD [Suspect]
     Active Substance: OXALIPLATIN
     Indication: COLORECTAL CANCER
     Route: 042
     Dates: start: 20180313, end: 20180313
  4. LEVOFOLINATE SODIUM MEDAC [Concomitant]
     Indication: COLORECTAL CANCER
     Route: 042
     Dates: start: 20180313, end: 20180313

REACTIONS (2)
  - Macroglossia [Recovered/Resolved]
  - Paraesthesia oral [Recovered/Resolved]

NARRATIVE: CASE EVENT DATE: 20180313
